FAERS Safety Report 16033445 (Version 1)
Quarter: 2019Q1

REPORT INFORMATION
  Report Type: Spontaneous
  Country: US (occurrence: US)
  Receive Date: 20190305
  Receipt Date: 20190305
  Transmission Date: 20190418
  Serious: No
  Sender: FDA-Public Use
  Company Number: US-PRINSTON PHARMACEUTICAL INC.-2019PRN00023

PATIENT
  Age: 84 Year
  Sex: Female
  Weight: 77.1 kg

DRUGS (5)
  1. DULOXETINE. [Suspect]
     Active Substance: DULOXETINE
     Indication: ARTHRALGIA
     Dosage: 30 MG, 1X/DAY
     Route: 048
     Dates: start: 201812, end: 201812
  2. ROSUVASTATIN. [Concomitant]
     Active Substance: ROSUVASTATIN
  3. NORVASC [Concomitant]
     Active Substance: AMLODIPINE BESYLATE
  4. ISOSORBIDE. [Concomitant]
     Active Substance: ISOSORBIDE
  5. UNKNOWN ESTROGEN PILL [Concomitant]

REACTIONS (3)
  - Bronchitis [Not Recovered/Not Resolved]
  - Product administration error [Unknown]
  - Drug ineffective [Unknown]

NARRATIVE: CASE EVENT DATE: 201812
